FAERS Safety Report 6237521-5 (Version None)
Quarter: 2009Q2

REPORT INFORMATION
  Report Type: 
  Country: None (occurrence: None)
  Receive Date: 20090619
  Receipt Date: 20090605
  Transmission Date: 20091009
  Serious: Yes (Hospitalization)
  Sender: FDA-Public Use
  Company Number: JP-GENENTECH-285281

PATIENT
  Age: 86 Year
  Sex: Male

DRUGS (2)
  1. AVASTIN [Suspect]
     Indication: VENOUS OCCLUSION
     Dosage: 12 MG, UNK
     Route: 031
  2. ANTIBIOTIC NOS [Concomitant]
     Indication: DRUG USE FOR UNKNOWN INDICATION
     Dosage: UNK

REACTIONS (2)
  - PULMONARY ALVEOLAR HAEMORRHAGE [None]
  - RESPIRATORY FAILURE [None]
